FAERS Safety Report 8318654-6 (Version None)
Quarter: 2012Q2

REPORT INFORMATION
  Report Type: 
  Country: None (occurrence: None)
  Receive Date: 20120427
  Receipt Date: 20120424
  Transmission Date: 20120825
  Serious: Yes (Hospitalization, Other)
  Sender: FDA-Public Use
  Company Number: US-AMGEN-USASP2012025822

PATIENT
  Age: 63 Year
  Sex: Female
  Weight: 68.9 kg

DRUGS (2)
  1. NPLATE [Suspect]
     Dosage: 3 MUG/KG, UNK
     Dates: start: 20111201
  2. NPLATE [Suspect]
     Indication: IDIOPATHIC THROMBOCYTOPENIC PURPURA
     Dosage: 1 MUG, UNK
     Dates: start: 20110601

REACTIONS (6)
  - PULMONARY EMBOLISM [None]
  - INVESTIGATION ABNORMAL [None]
  - PYREXIA [None]
  - PLATELET COUNT INCREASED [None]
  - PLATELET COUNT DECREASED [None]
  - HOSPITALISATION [None]
